FAERS Safety Report 8448705-X (Version None)
Quarter: 2012Q2

REPORT INFORMATION
  Report Type: 
  Country: None (occurrence: None)
  Receive Date: 20120619
  Receipt Date: 20120430
  Transmission Date: 20120825
  Serious: Yes (Other)
  Sender: FDA-Public Use
  Company Number: US-ROCHE-1058754

PATIENT
  Age: 44 Year
  Sex: Female
  Weight: 61 kg

DRUGS (10)
  1. MORPHINE SULFATE [Suspect]
  2. LACTULOSE [Suspect]
     Indication: PRODUCT USED FOR UNKNOWN INDICATION
  3. VISMODEGIB [Suspect]
     Dosage: RESTARTED
  4. TRAMADOL HCL [Suspect]
     Indication: PRODUCT USED FOR UNKNOWN INDICATION
  5. ACETAMINOPHEN [Suspect]
     Indication: PRODUCT USED FOR UNKNOWN INDICATION
  6. MORPHINE SULFATE [Suspect]
     Indication: PRODUCT USED FOR UNKNOWN INDICATION
  7. VISMODEGIB [Suspect]
     Indication: CHONDROSARCOMA
     Dosage: INTERRUPTED, TOTAL DOSE RECEIVED 1200 MG
     Route: 048
     Dates: start: 20120220, end: 20120326
  8. PREGABALIN [Suspect]
     Indication: PRODUCT USED FOR UNKNOWN INDICATION
  9. NEFOPAM HYDROCHLORIDE [Suspect]
     Indication: PRODUCT USED FOR UNKNOWN INDICATION
  10. METOCLOPRAMIDE HCL [Suspect]
     Indication: PRODUCT USED FOR UNKNOWN INDICATION

REACTIONS (3)
  - ASPARTATE AMINOTRANSFERASE INCREASED [None]
  - ALANINE AMINOTRANSFERASE INCREASED [None]
  - GAMMA-GLUTAMYLTRANSFERASE INCREASED [None]
